FAERS Safety Report 22093423 (Version 1)
Quarter: 2023Q1

REPORT INFORMATION
  Report Type: Report from Study
  Country: US (occurrence: US)
  Receive Date: 20230314
  Receipt Date: 20230314
  Transmission Date: 20230417
  Serious: Yes (Other)
  Sender: FDA-Public Use
  Company Number: US-ABBVIE-4338316

PATIENT
  Age: 64 Year
  Sex: Male

DRUGS (1)
  1. HUMIRA [Suspect]
     Active Substance: ADALIMUMAB
     Indication: Uveitis
     Dosage: CITRATE FREE?FORM STRENGTH: 40 MG?FIRST ADMIN DATE 12 JAN 2022
     Route: 058

REACTIONS (5)
  - Retinal tear [Recovering/Resolving]
  - Gastrointestinal disorder [Recovering/Resolving]
  - Lacrimation increased [Unknown]
  - Gastric disorder [Recovering/Resolving]
  - Eye pain [Unknown]

NARRATIVE: CASE EVENT DATE: 20211019
